FAERS Safety Report 8571340-X (Version None)
Quarter: 2012Q2

REPORT INFORMATION
  Report Type: 
  Country: None (occurrence: None)
  Receive Date: 20120418
  Receipt Date: 20081001
  Transmission Date: 20120825
  Serious: Yes (Other)
  Sender: FDA-Public Use
  Company Number: PHEH2008US08748

PATIENT
  Age: 31 Year
  Sex: Male

DRUGS (2)
  1. ATENOLOL [Concomitant]
  2. DIOVAN HCT [Suspect]

REACTIONS (2)
  - ABDOMINAL PAIN [None]
  - PANCREATITIS [None]
